FAERS Safety Report 12162241 (Version 1)
Quarter: 2016Q1

REPORT INFORMATION
  Report Type: Spontaneous
  Country: US (occurrence: None)
  Receive Date: 20160308
  Receipt Date: 20160308
  Transmission Date: 20160526
  Serious: Yes (Hospitalization)
  Sender: FDA-Public Use
  Company Number: None

PATIENT
  Age: 49 Year
  Sex: Female

DRUGS (7)
  1. PHENTERMINE. [Suspect]
     Active Substance: PHENTERMINE
     Indication: METABOLIC DISORDER
     Dosage: 3/2-1 TAB
     Route: 048
  2. METFORMIN [Concomitant]
     Active Substance: METFORMIN HYDROCHLORIDE
  3. LIOTHYRONINE [Suspect]
     Active Substance: LIOTHYRONINE
     Indication: METABOLIC DISORDER
     Dosage: CHRONIC
  4. HGH-191 [Concomitant]
     Active Substance: DIETARY SUPPLEMENT
  5. LETROZOLE. [Concomitant]
     Active Substance: LETROZOLE
  6. GLUCOPHAGE [Concomitant]
     Active Substance: METFORMIN HYDROCHLORIDE
  7. TAMOXIFEN [Concomitant]
     Active Substance: TAMOXIFEN

REACTIONS (6)
  - Metabolic syndrome [None]
  - Hypopnoea [None]
  - Ventricular fibrillation [None]
  - Pulse absent [None]
  - Cardio-respiratory arrest [None]
  - Self-medication [None]

NARRATIVE: CASE EVENT DATE: 20160121
